FAERS Safety Report 12637140 (Version 1)
Quarter: 2016Q3

REPORT INFORMATION
  Report Type: Spontaneous
  Country: US (occurrence: US)
  Receive Date: 20160809
  Receipt Date: 20160809
  Transmission Date: 20161109
  Serious: No
  Sender: FDA-Public Use
  Company Number: US-BEH-2015053390

PATIENT
  Age: 57 Year
  Sex: Male
  Weight: 108 kg

DRUGS (12)
  1. PRIVIGEN [Suspect]
     Active Substance: HUMAN IMMUNOGLOBULIN G
     Indication: NEUROPATHY PERIPHERAL
     Route: 042
     Dates: start: 20150818, end: 20150818
  2. EPIPEN [Concomitant]
     Active Substance: EPINEPHRINE
     Indication: ANAPHYLACTIC REACTION
  3. VALIUM [Concomitant]
     Active Substance: DIAZEPAM
  4. TEMAZEPAM. [Concomitant]
     Active Substance: TEMAZEPAM
  5. PERCOCET [Concomitant]
     Active Substance: ACETAMINOPHEN\OXYCODONE HYDROCHLORIDE
  6. SODIUM [Concomitant]
     Active Substance: SODIUM
  7. ACETAMINOPHEN. [Concomitant]
     Active Substance: ACETAMINOPHEN
  8. HEPARIN [Concomitant]
     Active Substance: HEPARIN SODIUM
  9. DIPHENHYDRAMINE. [Concomitant]
     Active Substance: DIPHENHYDRAMINE
  10. LIDOCAINE. [Concomitant]
     Active Substance: LIDOCAINE
  11. MELOXICAM. [Concomitant]
     Active Substance: MELOXICAM
  12. STERILE WATER [Concomitant]
     Active Substance: WATER

REACTIONS (2)
  - Headache [Unknown]
  - Fatigue [Unknown]

NARRATIVE: CASE EVENT DATE: 20150818
